FAERS Safety Report 9709876 (Version 5)
Quarter: 2014Q1

REPORT INFORMATION
  Report Type: Spontaneous
  Country: US (occurrence: US)
  Receive Date: 20131126
  Receipt Date: 20140324
  Transmission Date: 20141002
  Serious: No
  Sender: FDA-Public Use
  Company Number: US-PFIZER INC-2013336026

PATIENT
  Age: 59 Year
  Sex: Male
  Weight: 68.03 kg

DRUGS (6)
  1. SUTENT [Suspect]
     Indication: RENAL CELL CARCINOMA
     Dosage: 37.5 MG, 1X/DAY
     Dates: start: 20131104
  2. SUTENT [Suspect]
     Dosage: 25 MG, UNK
     Dates: start: 20131230
  3. BABY ASPIRIN [Concomitant]
     Dosage: UNK
  4. LISINOPRIL [Concomitant]
     Dosage: UNK
  5. METOPROLOL [Concomitant]
     Dosage: UNK
  6. ATORVASTATIN [Concomitant]
     Dosage: UNK

REACTIONS (14)
  - Diarrhoea [Not Recovered/Not Resolved]
  - Dysgeusia [Not Recovered/Not Resolved]
  - Stomatitis [Recovered/Resolved]
  - Decreased appetite [Unknown]
  - Headache [Unknown]
  - Nausea [Not Recovered/Not Resolved]
  - Pain in extremity [Not Recovered/Not Resolved]
  - Skin lesion [Unknown]
  - Local swelling [Unknown]
  - Fatigue [Unknown]
  - Impaired work ability [Unknown]
  - Asthenia [Unknown]
  - Skin exfoliation [Unknown]
  - Chest pain [Unknown]
